FAERS Safety Report 4676615-2 (Version None)
Quarter: 2005Q2

REPORT INFORMATION
  Report Type: 
  Country: None (occurrence: None)
  Receive Date: 20050527
  Receipt Date: 20050516
  Transmission Date: 20051028
  Serious: Yes (Other)
  Sender: FDA-Public Use
  Company Number: ID-ROCHE-405130

PATIENT
  Age: 56 Year
  Sex: Female

DRUGS (2)
  1. XELODA [Suspect]
     Route: 048
     Dates: start: 20050427, end: 20050511
  2. TAMOFEN [Concomitant]
     Indication: BREAST CANCER

REACTIONS (1)
  - HYPERGLYCAEMIA [None]
